FAERS Safety Report 4687698-8 (Version None)
Quarter: 2005Q2

REPORT INFORMATION
  Report Type: 
  Country: None (occurrence: None)
  Receive Date: 20050610
  Receipt Date: 20050531
  Transmission Date: 20051028
  Serious: Yes (Hospitalization)
  Sender: FDA-Public Use
  Company Number: 200511844FR

PATIENT
  Age: 70 Year
  Sex: Female

DRUGS (11)
  1. LANTUS [Suspect]
     Route: 058
     Dates: start: 20050507, end: 20050507
  2. LASILIX [Concomitant]
  3. NEO-MERCAZOLE TAB [Concomitant]
     Route: 048
     Dates: start: 20050507, end: 20050507
  4. AVLOCARDYL [Concomitant]
     Route: 048
  5. CALCIPARINE [Concomitant]
  6. ALLOPURINOL [Concomitant]
  7. TAHOR [Concomitant]
     Route: 048
  8. NEORECORMON [Concomitant]
  9. DUPHALAC [Concomitant]
     Route: 048
  10. OMEPRAZOLE [Concomitant]
  11. OSMOTAN [Concomitant]

REACTIONS (3)
  - HYPERCALCAEMIA [None]
  - HYPONATRAEMIA [None]
  - SHOCK [None]
